FAERS Safety Report 5913973-2 (Version None)
Quarter: 2008Q3

REPORT INFORMATION
  Report Type: 
  Country: None (occurrence: None)
  Receive Date: 20080909
  Receipt Date: 20071121
  Transmission Date: 20090109
  Serious: Yes (Hospitalization)
  Sender: FDA-Public Use
  Company Number: 163-20785-07091187 (0)

PATIENT
  Age: 52 Year
  Sex: Male
  Weight: 130 kg

DRUGS (33)
  1. THALOMID [Suspect]
     Indication: MULTIPLE MYELOMA
     Dosage: 200 MG, 1 IN 1 D, ORAL ; 50 MG, EVERY EVENING, ORAL
     Route: 048
     Dates: start: 20040814, end: 20050101
  2. THALOMID [Suspect]
     Indication: MULTIPLE MYELOMA
     Dosage: 200 MG, 1 IN 1 D, ORAL ; 50 MG, EVERY EVENING, ORAL
     Route: 048
     Dates: start: 20050101
  3. DEXAMETHASONE TAB [Suspect]
     Indication: MULTIPLE MYELOMA
     Dosage: 40MG, DAILY, DAYS 1 THROUGH 4 EVERY 21 DAYS, ORAL ; 12MG, ON DAYS 1 THROUGH 4 EVERY 21 DAYS, ORAL
     Route: 048
     Dates: start: 20040814, end: 20050101
  4. DEXAMETHASONE TAB [Suspect]
     Indication: MULTIPLE MYELOMA
     Dosage: 40MG, DAILY, DAYS 1 THROUGH 4 EVERY 21 DAYS, ORAL ; 12MG, ON DAYS 1 THROUGH 4 EVERY 21 DAYS, ORAL
     Route: 048
     Dates: start: 20050101
  5. VELCADE [Suspect]
     Indication: MULTIPLE MYELOMA
     Dosage: 1 MG/M2 AND 0.8 MG/M2
     Dates: start: 20040811, end: 20060831
  6. CISPLATIN [Suspect]
     Indication: MULTIPLE MYELOMA
     Dosage: 10 MG/M2 - 7.5 MG/M2
     Dates: start: 20040814, end: 20050517
  7. ADRIAMYCIN PFS [Suspect]
     Indication: MULTIPLE MYELOMA
     Dosage: 10 MG/M2 - 7.5 MG/M2
     Dates: start: 20040814, end: 20050517
  8. CYCLOPHOSPHAMIDE [Suspect]
     Indication: MULTIPLE MYELOMA
     Dosage: 400 MG/M2 - 300 MG/M2
     Dates: start: 20040814, end: 20050517
  9. ETOPOSIDE [Suspect]
     Indication: MULTIPLE MYELOMA
     Dosage: 40 MG/M2 - 30 MG/M2
     Dates: start: 20040814, end: 20050517
  10. MELPHALAN (MELPHALAN) [Suspect]
     Indication: MULTIPLE MYELOMA
     Dosage: 200 MG/M2
     Dates: start: 20041020
  11. LANTUS [Concomitant]
  12. NOVOLOG [Concomitant]
  13. PROVENTIL (SALBUTAMOL) [Concomitant]
  14. TOPROL-XL [Concomitant]
  15. TRAZODONE (TRAZODONE) (100 MILLIGRAM) [Concomitant]
  16. VALIUM (DIAZEPAM) (5 MILLIGRAM) [Concomitant]
  17. ATROVENT [Concomitant]
  18. AUGMENTIN-XR (CLAVULIN) (1000 MILLIGRAM) [Concomitant]
  19. IMDUR [Concomitant]
  20. GLUCOPHAGE XR (METFORMIN HYDROCHLORIDE) [Concomitant]
  21. ANTIVERT (MECLOZINE HYDROCHLORIDE) [Concomitant]
  22. ELAVIL [Concomitant]
  23. EFFEXOR XR [Concomitant]
  24. NEURONTIN [Concomitant]
  25. ACCUPRIL [Concomitant]
  26. HUMULIN 70/30 [Concomitant]
  27. ZOVIRAX [Concomitant]
  28. OXYCONTIN [Concomitant]
  29. OXYCODONE HCL [Concomitant]
  30. ISORDIL [Concomitant]
  31. NITROSTAT [Concomitant]
  32. BACTRIM DOUBLE STRENGTH (BACTRIM) (TABLETS) [Concomitant]
  33. ASPIRIN [Concomitant]

REACTIONS (3)
  - CELLULITIS [None]
  - DEPRESSION [None]
  - SUICIDAL BEHAVIOUR [None]
